FAERS Safety Report 8221146-6 (Version None)
Quarter: 2012Q1

REPORT INFORMATION
  Report Type: 
  Country: None (occurrence: None)
  Receive Date: 20120320
  Receipt Date: 20120313
  Transmission Date: 20120608
  Serious: Yes (Disabling, Other)
  Sender: FDA-Public Use
  Company Number: FI-PFIZER INC-2012054984

PATIENT
  Age: 84 Year
  Sex: Female

DRUGS (3)
  1. BISOPROLOL [Concomitant]
     Indication: HYPERTENSION
     Dosage: 5 MG, UNK
  2. XALATAN [Suspect]
     Indication: GLAUCOMA
     Dosage: 1 DROP ONCE DAILY (IN THE EVENING) TO BOTH EYES
     Route: 047
  3. FELODIPINE [Concomitant]
     Indication: HYPERTENSION
     Dosage: 5 MG, UNK

REACTIONS (5)
  - HEADACHE [None]
  - FEELING ABNORMAL [None]
  - MALAISE [None]
  - VISUAL IMPAIRMENT [None]
  - DIZZINESS [None]
